FAERS Safety Report 20746621 (Version 1)
Quarter: 2022Q2

REPORT INFORMATION
  Report Type: Spontaneous
  Country: CN (occurrence: CN)
  Receive Date: 20220425
  Receipt Date: 20220425
  Transmission Date: 20220721
  Serious: Yes (Hospitalization)
  Sender: FDA-Public Use
  Company Number: CN-NOVARTISPH-NVSC2022CN094032

PATIENT
  Age: 3 Year
  Sex: Male
  Weight: 15.5 kg

DRUGS (9)
  1. OXCARBAZEPINE [Suspect]
     Active Substance: OXCARBAZEPINE
     Indication: Epilepsy
     Dosage: 0.45 G/TIME, ONCE A DAY IN THE MORNING AND ONCE IN THE EVENING
     Route: 048
  2. OXCARBAZEPINE [Suspect]
     Active Substance: OXCARBAZEPINE
     Dosage: DOSE INCREASE
     Route: 048
  3. OXCARBAZEPINE [Suspect]
     Active Substance: OXCARBAZEPINE
     Dosage: REDUCED TO 0.75 G/DAY (0.45 G IN THE MORNING AND 0.3 G IN THE EVENING EACH DAY)
     Route: 048
  4. OXCARBAZEPINE [Suspect]
     Active Substance: OXCARBAZEPINE
     Dosage: ONCE A DAY IN THE MORNING AND ONCE IN THE EVENING, 0.225 G IN THE MORNING AND 0.15 G IN THE EVENING
     Route: 048
  5. VALPROATE SODIUM [Concomitant]
     Active Substance: VALPROATE SODIUM
     Indication: Epilepsy
     Dosage: THREE TIMES A DAY, 5 ML IN THE MORNING AND 5 ML IN THE EVENING, AND 4 ML AT NOON
     Route: 048
  6. VALPROATE SODIUM [Concomitant]
     Active Substance: VALPROATE SODIUM
     Dosage: INCREASED TO 5 ML/TIME, 3 TIMES/DAY
     Route: 048
  7. LATAMOXEF [Concomitant]
     Active Substance: LATAMOXEF
     Indication: Anti-infective therapy
     Dosage: 0.65 G/TIME, TWICE A DAY
     Route: 048
  8. OXIRACETAM [Concomitant]
     Active Substance: OXIRACETAM
     Indication: Nervous system disorder
     Dosage: 1 G/TIME, ONCE A DAY
     Route: 041
  9. LEVETIRACETAM [Concomitant]
     Active Substance: LEVETIRACETAM
     Indication: Epilepsy
     Dosage: 0.125 G, TID
     Route: 048

REACTIONS (1)
  - Hyponatraemia [Recovering/Resolving]
